FAERS Safety Report 7745811-X (Version None)
Quarter: 2011Q3

REPORT INFORMATION
  Report Type: 
  Country: None (occurrence: None)
  Receive Date: 20110913
  Receipt Date: 20110829
  Transmission Date: 20111222
  Serious: No
  Sender: FDA-Public Use
  Company Number: US-B.I. PHARMACEUTICALS,INC./RIDGEFIELD-2011-BP-18834BP

PATIENT
  Age: 69 Year
  Sex: Female

DRUGS (8)
  1. METOPROLOL SUCCINATE [Concomitant]
     Indication: HYPERTENSION
     Dosage: 50 MG
     Route: 048
     Dates: start: 20110701
  2. SOTALOL HCL [Concomitant]
     Indication: CARDIAC DISORDER
     Dosage: 160 MG
     Route: 048
  3. PRADAXA [Suspect]
     Indication: ATRIAL FIBRILLATION
     Dosage: 300 MG
     Route: 048
     Dates: start: 20110703
  4. VITAMIN D [Concomitant]
     Indication: PROPHYLAXIS
     Dosage: 1000 U
     Route: 048
  5. METOPROLOL SUCCINATE [Concomitant]
     Indication: CARDIAC DISORDER
  6. SYNTHROID [Concomitant]
     Indication: HYPOTHYROIDISM
     Dosage: 112 MCG
     Route: 048
  7. MULTI-VITAMINS [Concomitant]
     Indication: PROPHYLAXIS
     Route: 048
  8. PRADAXA [Suspect]
     Indication: ANTICOAGULANT THERAPY

REACTIONS (2)
  - CHEST DISCOMFORT [None]
  - SENSATION OF FOREIGN BODY [None]
